FAERS Safety Report 6265347-5 (Version None)
Quarter: 2009Q3

REPORT INFORMATION
  Report Type: 
  Country: None (occurrence: None)
  Receive Date: 20090713
  Receipt Date: 20090630
  Transmission Date: 20100115
  Serious: Yes (Other)
  Sender: FDA-Public Use
  Company Number: CA-AMGEN-QUU353814

PATIENT
  Age: 72 Year
  Sex: Female
  Weight: 58.97 kg

DRUGS (8)
  1. ENBREL [Suspect]
     Indication: RHEUMATOID ARTHRITIS
     Route: 058
     Dates: start: 20050407, end: 20051006
  2. HUMIRA [Suspect]
     Indication: RHEUMATOID ARTHRITIS
     Route: 058
     Dates: start: 20060109, end: 20060915
  3. RITUXAN [Suspect]
     Indication: RHEUMATOID ARTHRITIS
     Route: 042
     Dates: start: 20080603, end: 20080617
  4. IBUPROFEN [Concomitant]
  5. PREDNISONE TAB [Concomitant]
  6. WARFARIN SODIUM [Concomitant]
  7. METOPROLOL TARTRATE [Concomitant]
  8. ZOPICLONE [Concomitant]

REACTIONS (2)
  - MENINGIOMA [None]
  - PITUITARY TUMOUR [None]
